FAERS Safety Report 8881054 (Version 3)
Quarter: 2012Q4

REPORT INFORMATION
  Report Type: Report from Study
  Country: JP (occurrence: JP)
  Receive Date: 20121101
  Receipt Date: 20121130
  Transmission Date: 20130627
  Serious: Yes (Hospitalization)
  Sender: FDA-Public Use
  Company Number: JP-ABBOTT-12P-087-0951843-00

PATIENT
  Age: 53 Year
  Sex: Female
  Weight: 52 kg

DRUGS (12)
  1. HUMIRA 40 MG/ 0.8 ML PRE-FILLED SYRINGE [Suspect]
     Indication: RHEUMATOID ARTHRITIS
     Route: 058
     Dates: start: 20120420, end: 20120628
  2. METHOTREXATE [Concomitant]
     Indication: RHEUMATOID ARTHRITIS
     Route: 048
     Dates: end: 20120625
  3. METHOTREXATE [Concomitant]
     Route: 048
     Dates: start: 20120727, end: 20120809
  4. METHOTREXATE [Concomitant]
     Route: 048
     Dates: start: 20120810
  5. PREDNISOLONE [Concomitant]
     Indication: RHEUMATOID ARTHRITIS
     Route: 048
     Dates: end: 20120628
  6. PREDNISOLONE [Concomitant]
     Route: 048
     Dates: start: 20120727
  7. CELECOXIB [Concomitant]
     Indication: RHEUMATOID ARTHRITIS
     Route: 048
     Dates: end: 20120628
  8. CELECOXIB [Concomitant]
     Route: 048
     Dates: start: 20120727
  9. REBAMIPIDE [Concomitant]
     Indication: PROPHYLAXIS
     Route: 048
     Dates: end: 20120628
  10. REBAMIPIDE [Concomitant]
     Route: 048
     Dates: start: 20120727
  11. FOLIC ACID [Concomitant]
     Indication: PROPHYLAXIS
     Route: 048
     Dates: end: 20120628
  12. FOLIC ACID [Concomitant]
     Route: 048
     Dates: start: 20120727

REACTIONS (1)
  - Interstitial lung disease [Recovered/Resolved]
